FAERS Safety Report 16380307 (Version 1)
Quarter: 2019Q2

REPORT INFORMATION
  Report Type: Report from Study
  Country: None (occurrence: IL)
  Receive Date: 20190601
  Receipt Date: 20190601
  Transmission Date: 20190711
  Serious: Yes (Hospitalization, Disabling, Other)
  Sender: FDA-Public Use
  Company Number: IL-ABBVIE-18K-082-2522646-00

PATIENT
  Age: 42 Year
  Sex: Female

DRUGS (2)
  1. HUMIRA [Suspect]
     Active Substance: ADALIMUMAB
     Indication: PSORIATIC ARTHROPATHY
     Route: 058
     Dates: start: 20180903
  2. HUMIRA [Suspect]
     Active Substance: ADALIMUMAB
     Route: 058
     Dates: start: 2019

REACTIONS (14)
  - Pain [Unknown]
  - Pain [Not Recovered/Not Resolved]
  - Asthenia [Unknown]
  - Alopecia [Not Recovered/Not Resolved]
  - Drug ineffective [Recovering/Resolving]
  - Somnolence [Unknown]
  - Diarrhoea [Recovered/Resolved]
  - Arthralgia [Recovered/Resolved]
  - Arthritis [Recovering/Resolving]
  - Psoriatic arthropathy [Unknown]
  - Musculoskeletal stiffness [Recovering/Resolving]
  - Sinusitis bacterial [Recovered/Resolved]
  - Gait disturbance [Unknown]
  - Vomiting [Recovered/Resolved]

NARRATIVE: CASE EVENT DATE: 2018
